FAERS Safety Report 20986260 (Version 4)
Quarter: 2022Q3

REPORT INFORMATION
  Report Type: Report from Study
  Country: US (occurrence: US)
  Receive Date: 20220621
  Receipt Date: 20220808
  Transmission Date: 20221026
  Serious: Yes (Other)
  Sender: FDA-Public Use
  Company Number: US-CELGENE-USA-20220303122

PATIENT
  Age: 68 Year
  Sex: Male
  Weight: 86.18 kg

DRUGS (2)
  1. REVLIMID [Suspect]
     Active Substance: LENALIDOMIDE
     Indication: Plasma cell myeloma
     Dosage: 25 MILLIGRAM?BATCH NUMBER: A3769A; EXPIRY DATE: 30-SEP-2024
     Route: 048
     Dates: start: 201904
  2. REVLIMID [Suspect]
     Active Substance: LENALIDOMIDE
     Dosage: 10 MILLIGRAM?EVERY DAY FOR 28 DAYS
     Route: 048
     Dates: start: 201912

REACTIONS (10)
  - Pulmonary congestion [Unknown]
  - Haemorrhage [Unknown]
  - Upper respiratory tract infection [Unknown]
  - Asthma [Unknown]
  - Contusion [Unknown]
  - Abdominal pain upper [Unknown]
  - Myalgia [Unknown]
  - Back pain [Unknown]
  - Diarrhoea [Unknown]
  - Bone pain [Unknown]

NARRATIVE: CASE EVENT DATE: 20211101
